FAERS Safety Report 6985223-X (Version None)
Quarter: 2010Q3

REPORT INFORMATION
  Report Type: 
  Country: None (occurrence: None)
  Receive Date: 20100915
  Receipt Date: 20100910
  Transmission Date: 20110219
  Serious: Yes (Hospitalization)
  Sender: FDA-Public Use
  Company Number: FR-ROCHE-726610

PATIENT
  Sex: Female
  Weight: 22 kg

DRUGS (8)
  1. RIVOTRIL [Suspect]
     Indication: EPILEPSY
     Dosage: FREQUENCY: FOURTH DAILY, 0.1 MG/KG
     Route: 048
     Dates: start: 20100321, end: 20100331
  2. RIVOTRIL [Suspect]
     Dosage: 0.2500 MG/KG DAILY
     Route: 048
     Dates: end: 20100616
  3. TOPIRAMATE [Suspect]
     Indication: EPILEPSY
     Dosage: 3 MG/KG DAILY
     Route: 048
     Dates: start: 20100329, end: 20100616
  4. ZOVIRAX [Concomitant]
     Dates: start: 20100321
  5. DILANTIN [Concomitant]
     Dates: start: 20100323, end: 20100331
  6. DEPAKENE [Concomitant]
     Dates: start: 20100323, end: 20100331
  7. HYPNOVEL [Concomitant]
     Indication: SEDATION
     Dosage: 12 UG/KG/MIN
     Route: 042
  8. HYPNOVEL [Concomitant]
     Dosage: DOSE INCREASED
     Route: 042
     Dates: start: 20100331

REACTIONS (1)
  - CONDITION AGGRAVATED [None]
